FAERS Safety Report 10743865 (Version 1)
Quarter: 2015Q1

REPORT INFORMATION
  Report Type: Spontaneous
  Country: US (occurrence: None)
  Receive Date: 20150123
  Receipt Date: 20150123
  Transmission Date: 20150721
  Serious: Yes (Other)
  Sender: FDA-Public Use
  Company Number: None

PATIENT
  Age: 29 Year
  Sex: Male
  Weight: 104.33 kg

DRUGS (3)
  1. CYMBALTA [Suspect]
     Active Substance: DULOXETINE HYDROCHLORIDE
     Indication: AFFECTIVE DISORDER
     Dosage: 2PER DAY
     Route: 048
     Dates: start: 20150105, end: 20150120
  2. CYMBALTA [Suspect]
     Active Substance: DULOXETINE HYDROCHLORIDE
     Indication: DEPRESSION
     Dosage: 2PER DAY
     Route: 048
     Dates: start: 20150105, end: 20150120
  3. CYMBALTA [Suspect]
     Active Substance: DULOXETINE HYDROCHLORIDE
     Indication: PAIN
     Dosage: 2PER DAY
     Route: 048
     Dates: start: 20150105, end: 20150120

REACTIONS (4)
  - Product substitution issue [None]
  - Anger [None]
  - Confusional state [None]
  - Dizziness [None]

NARRATIVE: CASE EVENT DATE: 20150105
